FAERS Safety Report 6813803-0 (Version None)
Quarter: 2010Q3

REPORT INFORMATION
  Report Type: 
  Country: None (occurrence: None)
  Receive Date: 20100702
  Receipt Date: 20090826
  Transmission Date: 20110219
  Serious: Yes (Death, Other)
  Sender: FDA-Public Use
  Company Number: US-ASTRAZENECA-2009SE09705

PATIENT
  Age: 11919 Day
  Sex: Female

DRUGS (8)
  1. SEROQUEL [Suspect]
     Route: 048
     Dates: start: 20050111
  2. HYDROCORTISONE [Concomitant]
     Dosage: 5 MG TO 20 MG
     Dates: start: 20050111
  3. FUROSEMIDE [Concomitant]
     Dates: start: 20050111
  4. ESTRADIOL [Concomitant]
     Dosage: 2.5MG TO 3MG
     Dates: start: 20050111
  5. EFFEXOR XR [Concomitant]
     Dosage: 75 MG 2 TAB QD
     Dates: start: 20050111
  6. SYNTHROID [Concomitant]
     Dosage: 0.2 1 PILL QD
     Dates: start: 20050111
  7. TOPROL-XL [Concomitant]
     Dates: start: 20050111
  8. ZESTRIL [Concomitant]
     Indication: BLOOD PRESSURE
     Dosage: 10MG TO 20MG

REACTIONS (3)
  - DEATH [None]
  - DIABETES MELLITUS [None]
  - DIABETIC NEUROPATHY [None]
